FAERS Safety Report 8187218-X (Version None)
Quarter: 2012Q1

REPORT INFORMATION
  Report Type: 
  Country: None (occurrence: None)
  Receive Date: 20120306
  Receipt Date: 20120227
  Transmission Date: 20120608
  Serious: Yes (Other)
  Sender: FDA-Public Use
  Company Number: CA-JNJFOC-20120213519

PATIENT
  Sex: Female
  Weight: 99 kg

DRUGS (6)
  1. REMICADE [Suspect]
     Indication: CROHN'S DISEASE
     Route: 042
     Dates: start: 20080101
  2. NAPROXEN (ALEVE) [Concomitant]
     Route: 048
     Dates: start: 20120201
  3. PENTASA [Concomitant]
     Route: 048
     Dates: start: 20120225
  4. ASACOL [Concomitant]
     Route: 048
     Dates: start: 20120223
  5. FERROUS GLUCONATE [Concomitant]
     Route: 048
     Dates: start: 20120225
  6. ALL OTHER THERAPEUTIC PRODUCTS [Concomitant]
     Dosage: STARTED 30 YEARS AGO
     Route: 048

REACTIONS (2)
  - MATERNAL EXPOSURE DURING PREGNANCY [None]
  - ABORTION SPONTANEOUS [None]
